FAERS Safety Report 17830385 (Version 1)
Quarter: 2020Q2

REPORT INFORMATION
  Report Type: Spontaneous
  Country: US (occurrence: US)
  Receive Date: 20200527
  Receipt Date: 20200527
  Transmission Date: 20200714
  Serious: Yes (Other)
  Sender: FDA-Public Use
  Company Number: US-BAYER-2019-081330

PATIENT
  Age: 55 Year
  Sex: Male
  Weight: 102.2 kg

DRUGS (3)
  1. XARELTO [Suspect]
     Active Substance: RIVAROXABAN
     Indication: ATRIAL FIBRILLATION
     Dosage: 20 MG, QD
     Route: 048
     Dates: start: 20170106, end: 20180904
  2. ASPIRIN (CARDIO) [Suspect]
     Active Substance: ASPIRIN
     Indication: PRODUCT USED FOR UNKNOWN INDICATION
     Dosage: UNK
     Route: 065
  3. XARELTO [Suspect]
     Active Substance: RIVAROXABAN
     Indication: CEREBROVASCULAR ACCIDENT PROPHYLAXIS

REACTIONS (3)
  - Cerebrovascular accident [Unknown]
  - Upper gastrointestinal haemorrhage [Recovering/Resolving]
  - Haemorrhagic stroke [Unknown]

NARRATIVE: CASE EVENT DATE: 20170823
